FAERS Safety Report 11054540 (Version 1)
Quarter: 2015Q2

REPORT INFORMATION
  Report Type: Other
  Country: US (occurrence: US)
  Receive Date: 20150422
  Receipt Date: 20150422
  Transmission Date: 20150821
  Serious: Yes (Other)
  Sender: FDA-Public Use
  Company Number: US-SHIONOGI, INC-2015000434

PATIENT
  Age: 54 Year
  Sex: Female

DRUGS (2)
  1. DORIPENEM [Interacting]
     Active Substance: DORIPENEM
     Indication: PRODUCT USED FOR UNKNOWN INDICATION
     Dosage: 500 MG, TID (Q8H)
     Route: 042
  2. VALPROATE SODIUM. [Suspect]
     Active Substance: VALPROATE SODIUM
     Indication: PRODUCT USED FOR UNKNOWN INDICATION
     Dosage: 1250 MG, TID (Q8H)
     Route: 042

REACTIONS (6)
  - No therapeutic response [Unknown]
  - Pneumonia aspiration [Unknown]
  - Pneumonia klebsiella [Unknown]
  - Drug interaction [Unknown]
  - Enterobacter test positive [Unknown]
  - Anticonvulsant drug level below therapeutic [Unknown]
